FAERS Safety Report 4507472-2 (Version None)
Quarter: 2004Q4

REPORT INFORMATION
  Report Type: 
  Country: None (occurrence: None)
  Receive Date: 20041118
  Receipt Date: 20041109
  Transmission Date: 20050328
  Serious: Yes (Hospitalization)
  Sender: FDA-Public Use
  Company Number: ZONI002050

PATIENT
  Age: 69 Year
  Sex: Male

DRUGS (2)
  1. EXCEGRAN (ZONISAMIDE) [Suspect]
     Indication: CONVULSION
     Dosage: 200 MG, 1 IN 1 D, ORAL
     Route: 048
     Dates: start: 20040901, end: 20041025
  2. BAYASPIRIN (ACETYLSALICYLIC ACID0 [Suspect]
     Indication: CEREBRAL INFARCTION
     Dosage: 100 MG , 1 IN 1 D, ORAL
     Route: 048
     Dates: start: 20040814, end: 20041025

REACTIONS (2)
  - MALAISE [None]
  - NEUTROPHIL COUNT DECREASED [None]
